FAERS Safety Report 7348406-5 (Version None)
Quarter: 2011Q1

REPORT INFORMATION
  Report Type: 
  Country: None (occurrence: None)
  Receive Date: 20110311
  Receipt Date: 20110303
  Transmission Date: 20110831
  Serious: Yes (Hospitalization)
  Sender: FDA-Public Use
  Company Number: US-ELI_LILLY_AND_COMPANY-US201103001610

PATIENT
  Sex: Female

DRUGS (15)
  1. AUGMENTIN '125' [Concomitant]
  2. LOVENOX [Concomitant]
  3. VITRON C [Concomitant]
  4. DOCUSATE SODIUM [Concomitant]
  5. PRILOSEC [Concomitant]
     Dosage: 20 MG, UNK
  6. ALBUTEROL [Concomitant]
     Dosage: 90 UG, UNK
  7. VICODIN ES [Concomitant]
  8. TUMS [Concomitant]
     Dosage: 750 MG, UNK
  9. IBUPROFEN [Concomitant]
     Dosage: 600 MG, UNK
  10. CELEXA [Concomitant]
     Dosage: 40 MG, UNK
  11. FENTANYL [Concomitant]
  12. ADVAIR DISKUS 100/50 [Concomitant]
  13. FORTEO [Suspect]
     Indication: OSTEOPOROSIS
     Dosage: 20 UG, DAILY (1/D)
     Dates: start: 20101101
  14. BUMEX [Concomitant]
     Dosage: 1 MG, UNK
  15. NABUMETONE [Concomitant]
     Dosage: 500 MG, UNK

REACTIONS (2)
  - HIP FRACTURE [None]
  - INFECTION [None]
